FAERS Safety Report 15985785 (Version 2)
Quarter: 2019Q1

REPORT INFORMATION
  Report Type: Spontaneous
  Country: US (occurrence: US)
  Receive Date: 20190220
  Receipt Date: 20190226
  Transmission Date: 20190418
  Serious: Yes (Hospitalization, Other)
  Sender: FDA-Public Use
  Company Number: US-PFIZER INC-2019068620

PATIENT
  Age: 61 Year
  Sex: Female

DRUGS (4)
  1. PREDNISONE. [Concomitant]
     Active Substance: PREDNISONE
     Indication: GRAFT VERSUS HOST DISEASE IN SKIN
     Dosage: UNK
  2. TACROLIMUS. [Concomitant]
     Active Substance: TACROLIMUS
     Indication: GRAFT VERSUS HOST DISEASE IN SKIN
     Dosage: UNK
  3. GEMCITABINE HYDROCHLORIDE. [Suspect]
     Active Substance: GEMCITABINE HYDROCHLORIDE
     Indication: PERIPHERAL T-CELL LYMPHOMA UNSPECIFIED REFRACTORY
     Dosage: 1000 MG/M2, UNK
  4. DEXAMETHASONE. [Concomitant]
     Active Substance: DEXAMETHASONE
     Indication: PERIPHERAL T-CELL LYMPHOMA UNSPECIFIED REFRACTORY
     Dosage: 10 MG, UNK (INJECTION)

REACTIONS (1)
  - Pseudocellulitis [Recovered/Resolved]
